FAERS Safety Report 17426689 (Version 2)
Quarter: 2020Q1

REPORT INFORMATION
  Report Type: Spontaneous
  Country: CA (occurrence: CA)
  Receive Date: 20200217
  Receipt Date: 20200316
  Transmission Date: 20200409
  Serious: Yes (Other)
  Sender: FDA-Public Use
  Company Number: CA-PFIZER INC-2020068700

PATIENT
  Age: 72 Year
  Sex: Male

DRUGS (4)
  1. PREDNISONE. [Concomitant]
     Active Substance: PREDNISONE
     Dosage: 5 MG, 1X/DAY
  2. XELJANZ [Concomitant]
     Active Substance: TOFACITINIB CITRATE
  3. DIFLUCAN [Concomitant]
     Active Substance: FLUCONAZOLE
  4. METHOTREXATE SODIUM. [Suspect]
     Active Substance: METHOTREXATE SODIUM
     Dosage: WEEKLY

REACTIONS (1)
  - Immunodeficiency [Unknown]
